FAERS Safety Report 23701743 (Version 1)
Quarter: 2024Q2

REPORT INFORMATION
  Report Type: Spontaneous
  Country: CN (occurrence: CN)
  Receive Date: 20240403
  Receipt Date: 20240403
  Transmission Date: 20240715
  Serious: Yes (Other)
  Sender: FDA-Public Use
  Company Number: CN-PFIZER INC-PV202400042673

PATIENT
  Age: 58 Year
  Sex: Male

DRUGS (4)
  1. METHOTREXATE SODIUM [Suspect]
     Active Substance: METHOTREXATE SODIUM
     Indication: Neoplasm
     Dosage: 3.500 G, 1X/DAY
     Route: 041
     Dates: start: 20240313, end: 20240313
  2. PHOSPHOLIPID [Concomitant]
     Active Substance: PHOSPHOLIPID
     Indication: Therapeutic procedure
     Dosage: 697.5000 MG, 1X/DAY
     Route: 041
     Dates: start: 20240313, end: 20240321
  3. ROXATIDINE ACETATE HYDROCHLORIDE [Concomitant]
     Active Substance: ROXATIDINE ACETATE HYDROCHLORIDE
     Indication: Therapeutic procedure
     Dosage: 75.00000 MG, 1X/DAY
     Route: 041
     Dates: start: 20240313, end: 20240317
  4. COENZYME Q10 [Concomitant]
     Active Substance: DIETARY SUPPLEMENT\UBIDECARENONE
     Indication: Therapeutic procedure
     Dosage: 10.00000 MG, 1X/DAY
     Route: 048
     Dates: start: 20240313, end: 20240321

REACTIONS (3)
  - Hypometabolism [Recovering/Resolving]
  - Chemotherapeutic drug level increased [Recovering/Resolving]
  - Blood creatine phosphokinase abnormal [Recovering/Resolving]

NARRATIVE: CASE EVENT DATE: 20240314
